FAERS Safety Report 7296112-8 (Version None)
Quarter: 2011Q1

REPORT INFORMATION
  Report Type: 
  Country: None (occurrence: None)
  Receive Date: 20110216
  Receipt Date: 20110207
  Transmission Date: 20110831
  Serious: Yes (Other)
  Sender: FDA-Public Use
  Company Number: CH-JNJFOC-20110103092

PATIENT

DRUGS (2)
  1. BEVACIZUMAB [Suspect]
     Indication: BREAST CANCER METASTATIC
     Dosage: INFUSED ON DAY 1 AND DAY 15 OF 4-WEEK CYCLE
     Route: 065
  2. DOXORUBICIN HCL [Suspect]
     Indication: BREAST CANCER
     Dosage: INFUSED ON DAY 1 AND DAY 15 OF 4-WEEK CYCLE
     Route: 042

REACTIONS (1)
  - CARDIAC FAILURE [None]
